FAERS Safety Report 24831075 (Version 1)
Quarter: 2025Q1

REPORT INFORMATION
  Report Type: Spontaneous
  Country: US (occurrence: US)
  Receive Date: 20250110
  Receipt Date: 20250110
  Transmission Date: 20250408
  Serious: No
  Sender: GILEAD
  Company Number: US-GILEAD-2025-0699559

PATIENT
  Age: 58 Year
  Sex: Male

DRUGS (8)
  1. DESCOVY [Suspect]
     Active Substance: EMTRICITABINE\TENOFOVIR ALAFENAMIDE FUMARATE
     Indication: Prophylaxis against HIV infection
     Route: 065
     Dates: start: 20250108, end: 20250108
  2. BUPROPION [Concomitant]
     Active Substance: BUPROPION
     Indication: Prophylaxis against HIV infection
     Dates: start: 20250108, end: 20250108
  3. SERTACONAZOLE NITRATE [Concomitant]
     Active Substance: SERTACONAZOLE NITRATE
     Indication: Prophylaxis against HIV infection
     Dates: start: 20250108, end: 20250108
  4. METFORMIN [Concomitant]
     Active Substance: METFORMIN HYDROCHLORIDE
     Indication: Prophylaxis against HIV infection
     Dates: start: 20250108, end: 20250108
  5. LEVOTHYROXINE [Concomitant]
     Active Substance: LEVOTHYROXINE
     Indication: Prophylaxis against HIV infection
     Dates: start: 20250108, end: 20250108
  6. TRADOX [DOXYCYCLINE HYDROCHLORIDE] [Concomitant]
     Indication: Prophylaxis against HIV infection
     Dates: start: 20250108, end: 20250108
  7. VITAMINS NOS [Concomitant]
     Active Substance: VITAMINS
  8. IRON [Concomitant]
     Active Substance: IRON

REACTIONS (2)
  - Pruritus [Recovered/Resolved]
  - Burning sensation [Recovered/Resolved]

NARRATIVE: CASE EVENT DATE: 20250108
